FAERS Safety Report 9129754 (Version 1)
Quarter: 2013Q1

REPORT INFORMATION
  Report Type: Spontaneous
  Country: FI (occurrence: FI)
  Receive Date: 20130125
  Receipt Date: 20130125
  Transmission Date: 20140127
  Serious: Yes (Hospitalization)
  Sender: FDA-Public Use
  Company Number: FI-ROCHE-1183507

PATIENT
  Sex: Female

DRUGS (2)
  1. MABTHERA [Suspect]
     Indication: DERMATOMYOSITIS
     Route: 042
     Dates: start: 20120904
  2. MABTHERA [Suspect]
     Route: 042
     Dates: start: 20120918

REACTIONS (2)
  - Bronchitis [Recovering/Resolving]
  - Pulmonary toxicity [Unknown]
